FAERS Safety Report 4325263-2 (Version None)
Quarter: 2004Q1

REPORT INFORMATION
  Report Type: 
  Country: None (occurrence: None)
  Receive Date: 20040324
  Receipt Date: 20040310
  Transmission Date: 20041129
  Serious: Yes (Hospitalization, Other)
  Sender: FDA-Public Use
  Company Number: 2004201990DE

PATIENT
  Age: 58 Year
  Sex: Male
  Weight: 94 kg

DRUGS (1)
  1. BEXTRA [Suspect]
     Indication: ARTHRALGIA
     Dosage: 20 MG, QD, ORAL
     Route: 048
     Dates: start: 20040220, end: 20040226

REACTIONS (12)
  - ASTHENIA [None]
  - BLOOD CREATININE INCREASED [None]
  - BLOOD URIC ACID INCREASED [None]
  - CHILLS [None]
  - DYSURIA [None]
  - EXANTHEM [None]
  - FEELING ABNORMAL [None]
  - HEPATIC STEATOSIS [None]
  - PYREXIA [None]
  - SYNCOPE [None]
  - TOXIC EPIDERMAL NECROLYSIS [None]
  - URINARY TRACT DISORDER [None]
